FAERS Safety Report 7649724-3 (Version None)
Quarter: 2011Q3

REPORT INFORMATION
  Report Type: 
  Country: None (occurrence: None)
  Receive Date: 20110802
  Receipt Date: 20110719
  Transmission Date: 20111222
  Serious: Yes (Other)
  Sender: FDA-Public Use
  Company Number: US-BAYER-2011-062203

PATIENT
  Age: 27 Year
  Sex: Female

DRUGS (4)
  1. CLARITIN [Concomitant]
     Indication: HYPERSENSITIVITY
  2. ANTIHISTAMINES [Concomitant]
     Indication: MULTIPLE ALLERGIES
     Dosage: 20 MCG/24HR, CONT
     Route: 015
  3. ZYRTEC [Concomitant]
     Indication: HYPERSENSITIVITY
  4. MIRENA [Suspect]
     Dosage: 20 MCG/24HR, CONT
     Route: 015
     Dates: start: 20110610, end: 20110714

REACTIONS (6)
  - FATIGUE [None]
  - PRURITUS GENERALISED [None]
  - HYPERSENSITIVITY [None]
  - URTICARIA [None]
  - DISCOMFORT [None]
  - SOMNOLENCE [None]
